FAERS Safety Report 8500407-7 (Version None)
Quarter: 2012Q3

REPORT INFORMATION
  Report Type: 
  Country: None (occurrence: None)
  Receive Date: 20120710
  Receipt Date: 20120703
  Transmission Date: 20120928
  Serious: Yes (Other)
  Sender: FDA-Public Use
  Company Number: US-AMGEN-USASP2011053413

PATIENT
  Sex: Female

DRUGS (1)
  1. NPLATE [Suspect]
     Indication: IDIOPATHIC THROMBOCYTOPENIC PURPURA
     Dosage: 50 MUG, ONE TIME DOSE
     Dates: start: 20110727, end: 20110727

REACTIONS (2)
  - DRUG INEFFECTIVE [None]
  - LIVING IN RESIDENTIAL INSTITUTION [None]
